FAERS Safety Report 4964850-5 (Version None)
Quarter: 2006Q2

REPORT INFORMATION
  Report Type: 
  Country: None (occurrence: None)
  Receive Date: 20060406
  Receipt Date: 20060327
  Transmission Date: 20061013
  Serious: Yes (Hospitalization)
  Sender: FDA-Public Use
  Company Number: GB-BRISTOL-MYERS SQUIBB COMPANY-13335237

PATIENT
  Age: 68 Year
  Sex: Female
  Weight: 57 kg

DRUGS (8)
  1. ENDOXAN [Suspect]
     Indication: BREAST CANCER
     Route: 042
     Dates: start: 20050802, end: 20060124
  2. METHOTREXATE [Suspect]
     Indication: BREAST CANCER
     Route: 042
     Dates: start: 20050802, end: 20060124
  3. FLUOROURACIL [Suspect]
     Indication: BREAST CANCER
     Route: 042
     Dates: start: 20050802, end: 20060124
  4. EPIRUBICIN [Suspect]
     Indication: BREAST CANCER
     Route: 042
     Dates: start: 20050802, end: 20060124
  5. OMEPRAZOLE [Concomitant]
  6. BECLOMETHASONE INHALER [Concomitant]
     Route: 055
  7. SALBUTAMOL [Concomitant]
     Route: 055
  8. LOSARTAN POTASSIUM [Concomitant]
     Route: 048

REACTIONS (4)
  - NEUTROPENIA [None]
  - NEUTROPENIC SEPSIS [None]
  - PRODUCTIVE COUGH [None]
  - PYREXIA [None]
